FAERS Safety Report 24227661 (Version 1)
Quarter: 2024Q3

REPORT INFORMATION
  Report Type: Spontaneous
  Country: CN (occurrence: CN)
  Receive Date: 20240820
  Receipt Date: 20240820
  Transmission Date: 20241016
  Serious: Yes (Death, Hospitalization, Other)
  Sender: BIOGEN
  Company Number: CN-BBU-2024000183

PATIENT
  Age: 74 Year
  Sex: Female

DRUGS (4)
  1. TOCILIZUMAB [Suspect]
     Active Substance: TOCILIZUMAB
     Indication: COVID-19
     Dosage: SINGLE DOSE
  2. METHYLPREDNISOLONE [Suspect]
     Active Substance: METHYLPREDNISOLONE
     Indication: COVID-19
     Dosage: INITIAL DOSE
  3. METHYLPREDNISOLONE [Suspect]
     Active Substance: METHYLPREDNISOLONE
     Indication: COVID-19
     Dosage: TAPERED WITH THE IMPROVEMENT OF SYMPTOMS
  4. METHYLPREDNISOLONE [Suspect]
     Active Substance: METHYLPREDNISOLONE
     Indication: COVID-19
     Dosage: TAPERED DOSE

REACTIONS (5)
  - Large intestine perforation [Fatal]
  - Pneumomediastinum [Fatal]
  - Pneumoretroperitoneum [Fatal]
  - Abdominal infection [Fatal]
  - Peritonitis [Fatal]
